FAERS Safety Report 25853584 (Version 1)
Quarter: 2025Q3

REPORT INFORMATION
  Report Type: Spontaneous
  Country: US (occurrence: None)
  Receive Date: 20250926
  Receipt Date: 20250926
  Transmission Date: 20251020
  Serious: Yes (Other)
  Sender: FDA-CTU
  Company Number: None

PATIENT
  Age: 56 Year
  Sex: Female
  Weight: 105.75 kg

DRUGS (6)
  1. TEPEZZA [Suspect]
     Active Substance: TEPROTUMUMAB-TRBW
     Dates: start: 20250410, end: 20250904
  2. AMLODIPINE [Concomitant]
     Active Substance: AMLODIPINE BESYLATE
  3. HERBALS [Concomitant]
     Active Substance: HERBALS
  4. VITAMIN C [Concomitant]
     Active Substance: ASCORBIC ACID
  5. VITAMIN D [Concomitant]
     Active Substance: VITAMIN D NOS
  6. NM-6603 [Concomitant]
     Active Substance: NM-6603

REACTIONS (3)
  - Epistaxis [None]
  - Nasal dryness [None]
  - Epistaxis [None]

NARRATIVE: CASE EVENT DATE: 20250522
